FAERS Safety Report 4321140-1 (Version None)
Quarter: 2004Q1

REPORT INFORMATION
  Report Type: 
  Country: None (occurrence: None)
  Receive Date: 20040315
  Receipt Date: 20030528
  Transmission Date: 20041129
  Serious: Yes (Hospitalization)
  Sender: FDA-Public Use
  Company Number: US_030594873

PATIENT
  Age: 68 Year
  Sex: Male
  Weight: 85 kg

DRUGS (11)
  1. GEMZAR [Suspect]
     Indication: ADENOCARCINOMA PANCREAS
     Dosage: 2130 MG
     Dates: start: 20021002
  2. TYLENOL W/ CODEINE NO. 3 [Concomitant]
  3. MAGNESIUM CITRATE [Concomitant]
  4. SENNA [Concomitant]
  5. COLACE (DOCUSATE SODIUM) [Concomitant]
  6. NEXIUM [Concomitant]
  7. MULTIVITAMINS NOS (MULTIVITAMINS NOS) [Concomitant]
  8. PROTONIX [Concomitant]
  9. POTASSIUM [Concomitant]
  10. HYDROCODONE [Concomitant]
  11. VIAGRA [Concomitant]

REACTIONS (2)
  - BODY TEMPERATURE INCREASED [None]
  - SEPSIS [None]
